FAERS Safety Report 4700453-5 (Version None)
Quarter: 2005Q2

REPORT INFORMATION
  Report Type: 
  Country: None (occurrence: None)
  Receive Date: 20050624
  Receipt Date: 20050615
  Transmission Date: 20051028
  Serious: Yes (Other)
  Sender: FDA-Public Use
  Company Number: GBWYE969512AUG04

PATIENT
  Age: 62 Year
  Sex: Male

DRUGS (12)
  1. RAPAMUNE [Suspect]
     Indication: PROPHYLAXIS AGAINST TRANSPLANT REJECTION
     Dosage: AVERAGE DOSE 3.5 MG/DAY, ORAL
     Route: 048
     Dates: start: 20030801
  2. DELTACORTIL (PREDNISOLONE) [Concomitant]
  3. ATENOLOL [Concomitant]
  4. CARDURA XL (DOXAZOSIN MESILATE) [Concomitant]
  5. PLAVIX [Concomitant]
  6. LIPOSTAT (PRAVASTATIN SODIUM) [Concomitant]
  7. LOSEC (OMEPRAZOLE) [Concomitant]
  8. NEOTIGASON (ACITRETIN) [Concomitant]
  9. GAVISCON [Concomitant]
  10. ROCALTROL [Concomitant]
  11. ALLOPURINOL [Concomitant]
  12. CARDICOR (BISOPROLOL) [Concomitant]

REACTIONS (4)
  - ARTHRALGIA [None]
  - CHILLS [None]
  - OEDEMA PERIPHERAL [None]
  - ROSACEA [None]
